FAERS Safety Report 21354633 (Version 4)
Quarter: 2022Q4

REPORT INFORMATION
  Report Type: Spontaneous
  Country: US (occurrence: US)
  Receive Date: 20220920
  Receipt Date: 20221214
  Transmission Date: 20230113
  Serious: No
  Sender: FDA-Public Use
  Company Number: None

PATIENT
  Age: 56 Year
  Sex: Female
  Weight: 71.21 kg

DRUGS (1)
  1. LORAZEPAM [Suspect]
     Active Substance: LORAZEPAM
     Indication: Anxiety
     Dosage: TOOK ONE HALF OF THE TABLET BY MOUTH 4 TIMES A DAY
     Route: 048

REACTIONS (2)
  - Product physical issue [Unknown]
  - Poor quality product administered [Unknown]
